FAERS Safety Report 12212565 (Version 4)
Quarter: 2016Q2

REPORT INFORMATION
  Report Type: Spontaneous
  Country: IT (occurrence: IT)
  Receive Date: 20160327
  Receipt Date: 20160405
  Transmission Date: 20160815
  Serious: Yes (Hospitalization)
  Sender: FDA-Public Use
  Company Number: IT-009507513-1603ITA010699

PATIENT
  Age: 83 Year
  Sex: Female

DRUGS (11)
  1. RIBAVIRIN. [Suspect]
     Active Substance: RIBAVIRIN
     Indication: CHRONIC HEPATITIS C
     Dosage: 800 MG DAILY
     Route: 048
     Dates: start: 20160205, end: 20160222
  2. LORAZEPAM. [Concomitant]
     Active Substance: LORAZEPAM
     Dosage: UNK
     Route: 048
  3. FERO GRAD VITAMINE C [Concomitant]
     Active Substance: ASCORBIC ACID\FERROUS SULFATE
     Dosage: 1 DOSE (UNIT) DAILY
     Dates: start: 20160222, end: 20160321
  4. RIBAVIRIN. [Suspect]
     Active Substance: RIBAVIRIN
     Dosage: 400 MG DAILY
     Route: 048
     Dates: start: 20160222
  5. SOFOSBUVIR [Concomitant]
     Active Substance: SOFOSBUVIR
     Dosage: 400 MG DAILY
     Route: 048
     Dates: start: 20160205, end: 20160222
  6. FOLINA (FOLIC ACID) [Concomitant]
     Active Substance: FOLIC ACID
     Dosage: 1 DOSE (UNIT) DAILY
     Route: 048
     Dates: start: 20160222, end: 20160321
  7. ESOMEPRAZOLE MAGNESIUM. [Concomitant]
     Active Substance: ESOMEPRAZOLE MAGNESIUM
     Dosage: UNK
     Route: 048
  8. EPOETIN ALFA [Concomitant]
     Active Substance: ERYTHROPOIETIN
     Dosage: 1 VIAL A WEEK (ON FRIDAY)
     Route: 058
     Dates: start: 20160301, end: 20160321
  9. EPOETIN ALFA [Concomitant]
     Active Substance: ERYTHROPOIETIN
     Dosage: 1 VIAL TWICE A WEEK ON MONDAY AND ON FRIDAY
     Route: 058
     Dates: start: 20160222, end: 20160229
  10. CARDIOASPIRIN [Concomitant]
     Active Substance: ASPIRIN
     Dosage: UNK
     Route: 048
  11. BISOPROLOL FUMARATE. [Concomitant]
     Active Substance: BISOPROLOL FUMARATE
     Dosage: UNK
     Route: 048

REACTIONS (2)
  - Dyspnoea exertional [Recovering/Resolving]
  - Anxiety [Recovering/Resolving]

NARRATIVE: CASE EVENT DATE: 20160222
